FAERS Safety Report 22225272 (Version 1)
Quarter: 2023Q2

REPORT INFORMATION
  Report Type: Spontaneous
  Country: GB (occurrence: GB)
  Receive Date: 20230418
  Receipt Date: 20230418
  Transmission Date: 20230722
  Serious: Yes (Other)
  Sender: FDA-Public Use
  Company Number: GB-002147023-NVSC2023GB081774

PATIENT

DRUGS (20)
  1. INTERFERON BETA-1B [Suspect]
     Active Substance: INTERFERON BETA-1B
     Indication: Multiple sclerosis
     Dosage: UNK
     Route: 065
  2. INTERFERON BETA-1B [Suspect]
     Active Substance: INTERFERON BETA-1B
     Indication: Relapsing-remitting multiple sclerosis
  3. INTERFERON BETA-1B [Suspect]
     Active Substance: INTERFERON BETA-1B
     Indication: Primary progressive multiple sclerosis
  4. INTERFERON BETA-1B [Suspect]
     Active Substance: INTERFERON BETA-1B
     Indication: Secondary progressive multiple sclerosis
  5. SIPONIMOD [Suspect]
     Active Substance: SIPONIMOD
     Indication: Multiple sclerosis
     Dosage: UNK
     Route: 065
  6. SIPONIMOD [Suspect]
     Active Substance: SIPONIMOD
     Indication: Relapsing-remitting multiple sclerosis
  7. SIPONIMOD [Suspect]
     Active Substance: SIPONIMOD
     Indication: Primary progressive multiple sclerosis
  8. SIPONIMOD [Suspect]
     Active Substance: SIPONIMOD
     Indication: Secondary progressive multiple sclerosis
  9. FINGOLIMOD [Suspect]
     Active Substance: FINGOLIMOD
     Indication: Multiple sclerosis
     Dosage: UNK
     Route: 065
  10. FINGOLIMOD [Suspect]
     Active Substance: FINGOLIMOD
     Indication: Relapsing-remitting multiple sclerosis
  11. FINGOLIMOD [Suspect]
     Active Substance: FINGOLIMOD
     Indication: Primary progressive multiple sclerosis
  12. FINGOLIMOD [Suspect]
     Active Substance: FINGOLIMOD
     Indication: Secondary progressive multiple sclerosis
  13. OFATUMUMAB [Suspect]
     Active Substance: OFATUMUMAB
     Indication: Multiple sclerosis
     Dosage: UNK
     Route: 065
  14. OFATUMUMAB [Suspect]
     Active Substance: OFATUMUMAB
     Indication: Relapsing-remitting multiple sclerosis
  15. OFATUMUMAB [Suspect]
     Active Substance: OFATUMUMAB
     Indication: Primary progressive multiple sclerosis
  16. OFATUMUMAB [Suspect]
     Active Substance: OFATUMUMAB
     Indication: Secondary progressive multiple sclerosis
  17. OFATUMUMAB [Suspect]
     Active Substance: OFATUMUMAB
     Indication: Multiple sclerosis
     Dosage: UNK
     Route: 065
  18. OFATUMUMAB [Suspect]
     Active Substance: OFATUMUMAB
     Indication: Relapsing-remitting multiple sclerosis
  19. OFATUMUMAB [Suspect]
     Active Substance: OFATUMUMAB
     Indication: Primary progressive multiple sclerosis
  20. OFATUMUMAB [Suspect]
     Active Substance: OFATUMUMAB
     Indication: Secondary progressive multiple sclerosis

REACTIONS (15)
  - Multiple sclerosis relapse [None]
  - Cerebral atrophy [None]
  - Neurodegenerative disorder [None]
  - Multiple sclerosis [None]
  - Expanded disability status scale score decreased [Not Recovered/Not Resolved]
  - Cognitive disorder [Not Recovered/Not Resolved]
  - Fatigue [None]
  - Quality of life decreased [Not Recovered/Not Resolved]
  - Neurological symptom [Not Recovered/Not Resolved]
  - Gastrointestinal disorder [None]
  - Influenza like illness [None]
  - Haematocrit abnormal [None]
  - JC polyomavirus test positive [None]
  - Injection site hypersensitivity [None]
  - Drug ineffective [None]
